FAERS Safety Report 10222339 (Version 3)
Quarter: 2020Q3

REPORT INFORMATION
  Report Type: Report from Study
  Country: US (occurrence: US)
  Receive Date: 20140606
  Receipt Date: 20140701
  Transmission Date: 20201105
  Serious: Yes (Hospitalization)
  Sender: FDA-Public Use
  Company Number: US-JNJFOC-20140600857

PATIENT
  Age: 62 Year
  Sex: Female

DRUGS (10)
  1. WARFARIN [Concomitant]
     Active Substance: WARFARIN
     Route: 065
  2. ASPIRIN. [Concomitant]
     Active Substance: ASPIRIN
     Route: 065
  3. SENOKOT?S [Concomitant]
     Active Substance: DOCUSATE SODIUM\SENNOSIDES
     Route: 065
  4. LEVOTHYROXINE. [Concomitant]
     Active Substance: LEVOTHYROXINE
     Route: 065
  5. EVARREST [Suspect]
     Active Substance: FIBRINOGEN HUMAN\THROMBIN HUMAN
     Indication: LIVER OPERATION
     Dosage: #215
     Route: 065
     Dates: start: 20140509, end: 20140509
  6. LANTUS [Concomitant]
     Active Substance: INSULIN GLARGINE
     Route: 065
  7. LATANOPROST. [Concomitant]
     Active Substance: LATANOPROST
     Route: 065
  8. EVARREST [Suspect]
     Active Substance: FIBRINOGEN HUMAN\THROMBIN HUMAN
     Route: 065
  9. HUMALOG [Concomitant]
     Active Substance: INSULIN LISPRO
     Route: 065
  10. TRAMADOL. [Concomitant]
     Active Substance: TRAMADOL
     Route: 065

REACTIONS (10)
  - Streptococcus test positive [None]
  - Peritoneal disorder [None]
  - Enterococcus test positive [None]
  - Pleural effusion [None]
  - Haemoglobin decreased [None]
  - Portal vein thrombosis [None]
  - Pulmonary mass [None]
  - Abdominal abscess [Recovered/Resolved]
  - Metastatic neoplasm [None]
  - Haematocrit decreased [None]

NARRATIVE: CASE EVENT DATE: 20140521
